FAERS Safety Report 10963466 (Version 1)
Quarter: 2015Q1

REPORT INFORMATION
  Report Type: Spontaneous
  Country: US (occurrence: None)
  Receive Date: 20150327
  Receipt Date: 20150327
  Transmission Date: 20150721
  Serious: Yes (Hospitalization)
  Sender: FDA-Public Use
  Company Number: None

PATIENT
  Age: 62 Year
  Sex: Male

DRUGS (1)
  1. CISPLATIN. [Suspect]
     Active Substance: CISPLATIN
     Dates: end: 20140305

REACTIONS (3)
  - Blood creatinine increased [None]
  - Acute kidney injury [None]
  - Mucosal inflammation [None]

NARRATIVE: CASE EVENT DATE: 20140313
